FAERS Safety Report 21893129 (Version 1)
Quarter: 2023Q1

REPORT INFORMATION
  Report Type: Spontaneous
  Country: US (occurrence: US)
  Receive Date: 20230121
  Receipt Date: 20230121
  Transmission Date: 20230418
  Serious: Yes (Life-Threatening, Hospitalization, Other)
  Sender: FDA-Public Use
  Company Number: None

PATIENT
  Age: 60 Year
  Sex: Male
  Weight: 294 kg

DRUGS (3)
  1. LORAZEPAM [Suspect]
     Active Substance: LORAZEPAM
     Indication: Anxiety
     Route: 048
     Dates: start: 20221016, end: 20221215
  2. LORAZEPAM [Suspect]
     Active Substance: LORAZEPAM
     Indication: Depression
  3. QUETIAPINE [Concomitant]
     Active Substance: QUETIAPINE
     Indication: Product used for unknown indication
     Route: 065

REACTIONS (8)
  - Liver injury [Recovered/Resolved]
  - Renal injury [Recovered/Resolved]
  - Abnormal behaviour [Recovered/Resolved]
  - Coma [Recovered/Resolved]
  - Blood pressure increased [Not Recovered/Not Resolved]
  - Gait inability [Recovered/Resolved]
  - Dehydration [Recovered/Resolved]
  - Delusion [Recovered/Resolved]

NARRATIVE: CASE EVENT DATE: 20221123
